FAERS Safety Report 6796910-0 (Version None)
Quarter: 2010Q2

REPORT INFORMATION
  Report Type: 
  Country: None (occurrence: None)
  Receive Date: 20100618
  Receipt Date: 20100616
  Transmission Date: 20101027
  Serious: Yes (Death, Other)
  Sender: FDA-Public Use
  Company Number: 2007SP018316

PATIENT
  Age: 66 Year
  Sex: Male
  Weight: 52 kg

DRUGS (15)
  1. TEMODAL [Suspect]
     Indication: GLIOBLASTOMA MULTIFORME
     Dosage: ; PO, 200 MG/M2; QD; PO
     Route: 048
     Dates: start: 20051226, end: 20060824
  2. TEMODAL [Suspect]
     Indication: GLIOBLASTOMA MULTIFORME
     Dosage: ; PO, 200 MG/M2; QD; PO
     Route: 048
     Dates: start: 20060921, end: 20060925
  3. TEMODAL [Suspect]
     Indication: GLIOBLASTOMA MULTIFORME
     Dosage: ; PO, 200 MG/M2; QD; PO
     Route: 048
     Dates: start: 20061019, end: 20061023
  4. TEMODAL [Suspect]
     Indication: GLIOBLASTOMA MULTIFORME
     Dosage: ; PO, 200 MG/M2; QD; PO
     Route: 048
     Dates: start: 20061217, end: 20061221
  5. TEMODAL [Suspect]
     Indication: GLIOBLASTOMA MULTIFORME
     Dosage: ; PO, 200 MG/M2; QD; PO
     Route: 048
     Dates: start: 20070115, end: 20070119
  6. COTRIM [Concomitant]
  7. GASTER D [Concomitant]
  8. HYDANTOL [Concomitant]
  9. SERMION [Concomitant]
  10. ONEALFA [Concomitant]
  11. RHYTHMY [Concomitant]
  12. ASPARA-CA [Concomitant]
  13. MAGNESIUM OXIDE [Concomitant]
  14. PROCTOSEDYL /00095901/ [Concomitant]
  15. RAMELTEON [Concomitant]

REACTIONS (5)
  - ALTERED STATE OF CONSCIOUSNESS [None]
  - EXECUTIVE DYSFUNCTION [None]
  - MALIGNANT NEOPLASM PROGRESSION [None]
  - PLATELET COUNT DECREASED [None]
  - PNEUMONIA ASPIRATION [None]
